FAERS Safety Report 16412114 (Version 4)
Quarter: 2019Q3

REPORT INFORMATION
  Report Type: Report from Study
  Country: US (occurrence: US)
  Receive Date: 20190610
  Receipt Date: 20190924
  Transmission Date: 20191004
  Serious: Yes (Hospitalization)
  Sender: FDA-Public Use
  Company Number: US-ACTELION-A-NJ2019-185169

PATIENT
  Sex: Male
  Weight: 79.37 kg

DRUGS (7)
  1. VELETRI [Suspect]
     Active Substance: EPOPROSTENOL
     Dosage: 17 NG/KG, PER MIN
     Route: 042
  2. VELETRI [Suspect]
     Active Substance: EPOPROSTENOL
     Indication: PULMONARY ARTERIAL HYPERTENSION
     Dosage: 21 NG/KG, PER MIN
     Route: 042
  3. VELETRI [Suspect]
     Active Substance: EPOPROSTENOL
     Dosage: 18 NG/KG, PER MIN
     Route: 042
  4. AMLODIPINE [Concomitant]
     Active Substance: AMLODIPINE BESYLATE
  5. VELETRI [Suspect]
     Active Substance: EPOPROSTENOL
     Dosage: 19 NG/KG, PER MIN
     Route: 042
  6. VELETRI [Suspect]
     Active Substance: EPOPROSTENOL
     Dosage: 22 NG/KG, PER MIN
     Route: 042
  7. VELETRI [Suspect]
     Active Substance: EPOPROSTENOL
     Dosage: 16 NG/KG, PER MIN
     Route: 042

REACTIONS (14)
  - Erythema [Unknown]
  - Diarrhoea [Unknown]
  - Diverticulitis [Unknown]
  - Pruritus generalised [Not Recovered/Not Resolved]
  - Adverse event [Unknown]
  - Nausea [Recovered/Resolved]
  - Memory impairment [Unknown]
  - Pain in jaw [Unknown]
  - Malaise [Unknown]
  - Gastrointestinal disorder [Unknown]
  - Application site pruritus [Not Recovered/Not Resolved]
  - Urinary tract infection [Unknown]
  - Constipation [Unknown]
  - Pain in extremity [Unknown]
